FAERS Safety Report 19824265 (Version 1)
Quarter: 2021Q3

REPORT INFORMATION
  Report Type: Report from Study
  Country: US (occurrence: US)
  Receive Date: 20210913
  Receipt Date: 20210913
  Transmission Date: 20211014
  Serious: No
  Sender: FDA-Public Use
  Company Number: NVSC2021US200661

PATIENT
  Age: 49 Year
  Sex: Male

DRUGS (1)
  1. PREDNISONE TABLETS USP [Suspect]
     Active Substance: PREDNISONE
     Indication: RENAL TRANSPLANT
     Dosage: 40 MG, QD (AFTER 3 DAYS DROPPED TO 20 MG, AFTER 2 WEEK DROPPED TO 10 MG, OVER THE PAST 2 YEARS LOWER
     Route: 048
     Dates: start: 201811

REACTIONS (1)
  - Insomnia [Not Recovered/Not Resolved]

NARRATIVE: CASE EVENT DATE: 201811
